FAERS Safety Report 7075431-4 (Version None)
Quarter: 2010Q4

REPORT INFORMATION
  Report Type: 
  Country: None (occurrence: None)
  Receive Date: 20101030
  Receipt Date: 20101012
  Transmission Date: 20110411
  Serious: No
  Sender: FDA-Public Use
  Company Number: US-WYE-H17477910

PATIENT
  Sex: Female
  Weight: 130.75 kg

DRUGS (6)
  1. PRISTIQ [Suspect]
     Indication: DEPRESSION
     Dosage: UNSPECIFIED
     Route: 048
     Dates: start: 20100809
  2. VENTOLIN [Concomitant]
  3. CRESTOR [Concomitant]
  4. TRAMADOL [Concomitant]
  5. MICARDIS HCT [Concomitant]
  6. METFORMIN [Concomitant]

REACTIONS (1)
  - BLOOD GLUCOSE INCREASED [None]
